FAERS Safety Report 9633586 (Version 1)
Quarter: 2013Q4

REPORT INFORMATION
  Report Type: Spontaneous
  Country: DE (occurrence: DE)
  Receive Date: 20131021
  Receipt Date: 20131021
  Transmission Date: 20140711
  Serious: Yes (Congenital Anomaly)
  Sender: FDA-Public Use
  Company Number: GXKR2013DE003259

PATIENT
  Sex: 0

DRUGS (5)
  1. RAMIPRIL [Suspect]
     Route: 064
  2. OBSIDAN [Suspect]
     Dosage: MATERNAL DOSE: 50 [MG/D ]
     Route: 064
     Dates: start: 20090820, end: 20100412
  3. DOPEGYT [Suspect]
     Dosage: MATERNAL DOSE: 1500 [MG/D ]/ INITIALLY 250MG/D, SHORTLY BEFORE DELIVERY MAX. 6 X 250 MG/D
     Route: 064
     Dates: start: 20090922, end: 20100412
  4. UTROGEST [Suspect]
     Dosage: MATERNAL DOSE: 100 [MG/D ]
     Route: 064
     Dates: start: 20091105, end: 20091126
  5. FOLSAEURE [Concomitant]
     Dosage: MATERNAL DOSE: 0.8 [MG/D ]
     Route: 064

REACTIONS (2)
  - Ureteric dilatation [Not Recovered/Not Resolved]
  - Congenital hydronephrosis [Not Recovered/Not Resolved]
